FAERS Safety Report 5513951-1 (Version None)
Quarter: 2007Q4

REPORT INFORMATION
  Report Type: 
  Country: None (occurrence: None)
  Receive Date: 20071113
  Receipt Date: 20071102
  Transmission Date: 20080405
  Serious: Yes (Other)
  Sender: FDA-Public Use
  Company Number: JP-BRISTOL-MYERS SQUIBB COMPANY-13975099

PATIENT
  Age: 19 Year
  Sex: Male

DRUGS (3)
  1. LASTET [Suspect]
     Indication: TESTIS CANCER
     Route: 042
  2. IFOMIDE [Suspect]
     Indication: TESTIS CANCER
     Route: 042
  3. RANDA [Suspect]
     Indication: TESTIS CANCER
     Route: 042

REACTIONS (2)
  - BLOOD CREATINE PHOSPHOKINASE INCREASED [None]
  - MYALGIA [None]
